FAERS Safety Report 7419028-2 (Version None)
Quarter: 2011Q2

REPORT INFORMATION
  Report Type: 
  Country: None (occurrence: None)
  Receive Date: 20110415
  Receipt Date: 20110411
  Transmission Date: 20111010
  Serious: Yes (Hospitalization, Other)
  Sender: FDA-Public Use
  Company Number: US-CEPHALON-2011001763

PATIENT
  Sex: Male
  Weight: 72 kg

DRUGS (1)
  1. TREANDA [Suspect]
     Indication: B-CELL SMALL LYMPHOCYTIC LYMPHOMA
     Route: 042
     Dates: start: 20101220

REACTIONS (9)
  - DIVERTICULUM [None]
  - PNEUMONITIS [None]
  - LYMPHADENOPATHY [None]
  - DIARRHOEA [None]
  - OESOPHAGEAL CANDIDIASIS [None]
  - BLOOD POTASSIUM DECREASED [None]
  - PROSTATOMEGALY [None]
  - GASTROINTESTINAL INFLAMMATION [None]
  - SPLENIC LESION [None]
